FAERS Safety Report 5797999-8 (Version None)
Quarter: 2008Q3

REPORT INFORMATION
  Report Type: 
  Country: None (occurrence: None)
  Receive Date: 20080702
  Receipt Date: 20041007
  Transmission Date: 20090109
  Serious: Yes (Death)
  Sender: FDA-Public Use
  Company Number: B0156819A

PATIENT
  Age: 22 Year
  Sex: Male

DRUGS (1)
  1. HALFAN [Suspect]

REACTIONS (6)
  - FALL [None]
  - HEAD INJURY [None]
  - HEADACHE [None]
  - LOSS OF CONSCIOUSNESS [None]
  - PYREXIA [None]
  - SUDDEN DEATH [None]
